FAERS Safety Report 8129631-2 (Version None)
Quarter: 2012Q1

REPORT INFORMATION
  Report Type: 
  Country: None (occurrence: None)
  Receive Date: 20120210
  Receipt Date: 20120208
  Transmission Date: 20120608
  Serious: Yes (Death)
  Sender: FDA-Public Use
  Company Number: CN-GLAXOSMITHKLINE-Z0009111B

PATIENT
  Sex: Male
  Weight: 85 kg

DRUGS (6)
  1. UNKNOWN MEDICATION [Concomitant]
     Dates: end: 20110429
  2. ENALAPRIL MALEATE [Concomitant]
     Dates: end: 20110913
  3. GLUTATHIONE [Concomitant]
     Dates: end: 20110422
  4. OMEPRAZOLE [Concomitant]
     Dates: end: 20110415
  5. VOTRIENT [Suspect]
     Indication: RENAL CELL CARCINOMA
     Dosage: 800MG PER DAY
     Route: 048
     Dates: start: 20110310
  6. PHOSPHATIDYL CHOLINE [Concomitant]
     Dates: end: 20110429

REACTIONS (2)
  - BRAIN HERNIATION [None]
  - HAEMORRHAGE INTRACRANIAL [None]
